FAERS Safety Report 9127911 (Version 1)
Quarter: 2013Q1

REPORT INFORMATION
  Report Type: Spontaneous
  Country: US (occurrence: US)
  Receive Date: 20130122
  Receipt Date: 20130122
  Transmission Date: 20140127
  Serious: Yes (Other)
  Sender: FDA-Public Use
  Company Number: US-JNJFOC-20130106305

PATIENT
  Sex: Male
  Weight: 151.96 kg

DRUGS (2)
  1. DURAGESIC [Suspect]
     Indication: PAIN
     Dosage: NDC 50458-093-05
     Route: 062
     Dates: start: 201203
  2. TOPAMAX [Suspect]
     Indication: WEIGHT DECREASED
     Dosage: 100 MGX2  AT BED TIME= 200 MG
     Route: 048

REACTIONS (4)
  - Amnesia [Not Recovered/Not Resolved]
  - Wrong technique in drug usage process [Recovered/Resolved]
  - Product quality issue [Unknown]
  - Poor quality drug administered [Unknown]
